FAERS Safety Report 9055409 (Version 2)
Quarter: 2013Q1

REPORT INFORMATION
  Report Type: Report from Study
  Country: JP (occurrence: JP)
  Receive Date: 20130206
  Receipt Date: 20130215
  Transmission Date: 20140127
  Serious: Yes (Other)
  Sender: FDA-Public Use
  Company Number: JP-OTSUKA-JP-2013-10147

PATIENT
  Age: 68 None
  Sex: Male
  Weight: 44 kg

DRUGS (14)
  1. SAMSCA [Suspect]
     Indication: FLUID RETENTION
     Dosage: 7.5 MG MILLIGRAM(S), QAM
     Route: 048
     Dates: start: 20121009
  2. LASIX [Suspect]
     Indication: CARDIAC FAILURE
     Dosage: 120 MG MILLIGRAM(S), DAILY DOSE
     Route: 042
     Dates: end: 20121014
  3. LASIX [Suspect]
     Dosage: 40 MG MILLIGRAM(S), DAILY DOSE
     Route: 042
     Dates: start: 20121015
  4. SOLDEM 3A [Suspect]
     Indication: CARDIAC FAILURE
     Dosage: 240 ML MILLILITRE(S), DAILY DOSE
     Route: 041
     Dates: end: 20121015
  5. PIMOBENDAN [Concomitant]
     Indication: CARDIAC FAILURE
     Dosage: 2.5 MG MILLIGRAM(S), DAILY DOSE
     Route: 048
  6. ARTIST [Concomitant]
     Indication: CARDIAC FAILURE
     Dosage: 5 MG MILLIGRAM(S), DAILY DOSE
     Route: 048
  7. ALDACTONE A [Concomitant]
     Indication: CARDIAC FAILURE
     Dosage: 25 MG MILLIGRAM(S), DAILY DOSE
     Route: 048
  8. WARFARIN [Concomitant]
     Dosage: 1 MG MILLIGRAM(S), DAILY DOSE
     Route: 048
  9. TAKEPRON [Concomitant]
     Indication: PROPHYLAXIS AGAINST GASTROINTESTINAL ULCER
     Dosage: 15 MG MILLIGRAM(S), DAILY DOSE
     Route: 048
  10. RISPERDAL [Concomitant]
     Dosage: 0.5 MG MILLIGRAM(S), DAILY DOSE
     Route: 048
  11. DOBUTREX [Concomitant]
     Indication: CARDIAC FAILURE
     Dosage: 4 UG/KG/MIN, DAILY DOSE
     Route: 041
  12. KAKODIN [Concomitant]
     Indication: CARDIAC FAILURE
     Dosage: 3 UG/KG/MIN, DAILY DOSE
     Route: 042
  13. HANP [Concomitant]
     Indication: CARDIAC FAILURE
     Dosage: 0.02 UG/KG/MIN, DAILY DOSE
     Route: 042
  14. ZOSYN [Concomitant]
     Dosage: 9 G GRAM(S), DAILY DOSE
     Route: 042

REACTIONS (3)
  - Platelet count decreased [Unknown]
  - Hypernatraemia [Recovered/Resolved]
  - Dehydration [Recovered/Resolved]
